FAERS Safety Report 5523008-1 (Version None)
Quarter: 2007Q4

REPORT INFORMATION
  Report Type: 
  Country: None (occurrence: None)
  Receive Date: 20071121
  Receipt Date: 20071113
  Transmission Date: 20080405
  Serious: Yes (Hospitalization)
  Sender: FDA-Public Use
  Company Number: US-WYE-H01231307

PATIENT
  Sex: Female

DRUGS (1)
  1. PREMARIN [Suspect]
     Indication: HOT FLUSH
     Dosage: NOT PROVIDED
     Route: 048
     Dates: start: 20020101

REACTIONS (3)
  - CHEST PAIN [None]
  - DYSPNOEA [None]
  - FLUID RETENTION [None]
